FAERS Safety Report 7384374-8 (Version None)
Quarter: 2011Q1

REPORT INFORMATION
  Report Type: 
  Country: None (occurrence: None)
  Receive Date: 20110330
  Receipt Date: 20110210
  Transmission Date: 20110831
  Serious: Yes (Hospitalization, Other)
  Sender: FDA-Public Use
  Company Number: US-BAYER-201034313NA

PATIENT
  Sex: Female
  Weight: 57 kg

DRUGS (11)
  1. YASMIN [Suspect]
     Indication: CONTRACEPTION
     Dosage: UNK
     Route: 048
     Dates: start: 20050401, end: 20060601
  2. YASMIN [Suspect]
     Indication: OVARIAN CYST
  3. AMOXICILLIN [Concomitant]
     Dosage: 500 MG, UNK
     Route: 048
     Dates: start: 20080508, end: 20080514
  4. SERTRALINE HYDROCHLORIDE [Concomitant]
     Dosage: 50 MG, UNK
     Route: 048
     Dates: start: 20081018, end: 20090707
  5. OCELLA [Suspect]
  6. YAZ [Suspect]
     Indication: PRODUCT USED FOR UNKNOWN INDICATION
     Route: 048
     Dates: start: 20050401, end: 20090701
  7. YASMIN [Suspect]
     Indication: PREMENSTRUAL SYNDROME
     Dosage: UNK
     Dates: start: 20080201, end: 20090601
  8. ZOMIG [Concomitant]
     Dosage: 2.5 MG, UNK
     Route: 048
     Dates: start: 20060916, end: 20090427
  9. HYDROCODONE BITARTRATE AND ACETAMINOPHEN [Concomitant]
     Dosage: 5MG/3.25MG
     Route: 048
     Dates: start: 20080903
  10. IBUPROFEN [Concomitant]
     Dosage: 600 MG, UNK
     Route: 048
     Dates: start: 20080508
  11. ZOLOFT [Concomitant]
     Dosage: 50 MG, UNK
     Route: 048
     Dates: start: 20060101, end: 20090101

REACTIONS (5)
  - HYPERTENSION [None]
  - CHOLECYSTITIS [None]
  - MIGRAINE [None]
  - BILIARY DYSKINESIA [None]
  - GALLBLADDER DISORDER [None]
